FAERS Safety Report 6790302-6 (Version None)
Quarter: 2010Q2

REPORT INFORMATION
  Report Type: 
  Country: None (occurrence: None)
  Receive Date: 20100624
  Receipt Date: 20100616
  Transmission Date: 20101027
  Serious: Yes (Other)
  Sender: FDA-Public Use
  Company Number: US-PFIZER INC-2010067047

PATIENT
  Sex: Male

DRUGS (3)
  1. LIPITOR [Suspect]
     Indication: HYPERLIPIDAEMIA
     Dosage: 10 MG, 1X/DAY
  2. LIPITOR [Suspect]
     Indication: CARDIOVASCULAR DISORDER
     Dosage: 40 MG, 1X/DAY
     Route: 048
  3. PREDNISONE [Concomitant]
     Dosage: 60 MG, 1X/DAY

REACTIONS (4)
  - ALVEOLITIS [None]
  - ALVEOLITIS ALLERGIC [None]
  - DYSPNOEA [None]
  - HYPOXIA [None]
